FAERS Safety Report 11133590 (Version 1)
Quarter: 2015Q2

REPORT INFORMATION
  Report Type: Spontaneous
  Country: US (occurrence: US)
  Receive Date: 20150523
  Receipt Date: 20150523
  Transmission Date: 20150821
  Serious: No
  Sender: FDA-Public Use
  Company Number: US-009507513-1504USA024223

PATIENT
  Age: 53 Year
  Sex: Male

DRUGS (1)
  1. REMERON [Suspect]
     Active Substance: MIRTAZAPINE
     Dosage: 45 MG, HS
     Route: 048

REACTIONS (1)
  - Intercepted drug dispensing error [Unknown]

NARRATIVE: CASE EVENT DATE: 20150414
